FAERS Safety Report 5205190-9 (Version None)
Quarter: 2007Q1

REPORT INFORMATION
  Report Type: 
  Country: None (occurrence: None)
  Receive Date: 20070108
  Receipt Date: 20070102
  Transmission Date: 20070707
  Serious: Yes (Hospitalization)
  Sender: FDA-Public Use
  Company Number: 2007P1000002

PATIENT
  Age: 74 Year
  Sex: Male

DRUGS (9)
  1. NICARDIPINE HYDROCHLORIDE [Suspect]
     Indication: HYPERTENSION
     Dosage: 50 MG; BID; PO
     Route: 048
     Dates: start: 20061106, end: 20061107
  2. ATRACURIUM BESYLATE [Concomitant]
  3. MIDAZOLAM HYDROCHLORIDE [Concomitant]
  4. FENTANYL TRANSDERMAL SYSTEM [Concomitant]
  5. IPRATROPIUM BROMIDE [Concomitant]
  6. TERBUTALINE SULFATE [Concomitant]
  7. BISOPROLOL FUMARATE [Concomitant]
  8. RAMIPRIL [Concomitant]
  9. INSULIN [Concomitant]

REACTIONS (3)
  - ACUTE GENERALISED EXANTHEMATOUS PUSTULOSIS [None]
  - RASH ERYTHEMATOUS [None]
  - WHITE BLOOD CELL DISORDER [None]
